FAERS Safety Report 8965014 (Version 3)
Quarter: 2013Q1

REPORT INFORMATION
  Report Type: Report from Study
  Country: AT (occurrence: AT)
  Receive Date: 20121214
  Receipt Date: 20130301
  Transmission Date: 20140127
  Serious: Yes (Other)
  Sender: FDA-Public Use
  Company Number: AT-ABBOTT-12P-009-1018583-00

PATIENT
  Age: 26 Year
  Sex: Female
  Weight: 63 kg

DRUGS (3)
  1. HUMIRA [Suspect]
     Indication: CROHN^S DISEASE
     Dosage: 160MG (BASELINE)
     Route: 058
     Dates: start: 20090811, end: 20090811
  2. HUMIRA [Suspect]
     Dosage: 80 MG WEEK 2
     Route: 058
  3. HUMIRA [Suspect]
     Route: 058
     Dates: end: 20100330

REACTIONS (1)
  - Intestinal fistula [Recovered/Resolved]
